FAERS Safety Report 6099287-1 (Version None)
Quarter: 2009Q1

REPORT INFORMATION
  Report Type: 
  Country: None (occurrence: None)
  Receive Date: 20090303
  Receipt Date: 20090226
  Transmission Date: 20090719
  Serious: Yes (Disabling, Other)
  Sender: FDA-Public Use
  Company Number: SE-BAYER-200911085GPV

PATIENT
  Age: 27 Year
  Sex: Female
  Weight: 62 kg

DRUGS (4)
  1. MAGNEVIST [Suspect]
     Indication: NUCLEAR MAGNETIC RESONANCE IMAGING
     Route: 042
     Dates: start: 20071107, end: 20071107
  2. LEVOTHYROXINE SODIUM [Concomitant]
     Indication: HYPOTHYROIDISM
     Route: 065
  3. ANTIBIOTICS [Concomitant]
     Indication: SINUSITIS
     Route: 065
  4. DOXICYCLIN [Concomitant]
     Indication: SINUSITIS
     Route: 065

REACTIONS (11)
  - AMNESIA [None]
  - CONVULSION [None]
  - FATIGUE [None]
  - HEADACHE [None]
  - HYPERACUSIS [None]
  - LOSS OF CONSCIOUSNESS [None]
  - MUSCLE SPASMS [None]
  - MUSCULAR WEAKNESS [None]
  - PHOTOPHOBIA [None]
  - SPEECH DISORDER [None]
  - VISUAL IMPAIRMENT [None]
